FAERS Safety Report 9119303 (Version 2)
Quarter: 2013Q1

REPORT INFORMATION
  Report Type: Spontaneous
  Country: US (occurrence: US)
  Receive Date: 20130226
  Receipt Date: 20130313
  Transmission Date: 20140127
  Serious: No
  Sender: FDA-Public Use
  Company Number: US-PFIZER INC-2013066343

PATIENT
  Age: 58 Year
  Sex: Female
  Weight: 77.1 kg

DRUGS (10)
  1. CALTRATE WITH VITAMIN D [Suspect]
     Indication: OSTEOPENIA
     Dosage: UNK, DAILY,ON AND OFF
  2. RAMIPRIL [Suspect]
     Indication: HYPERTENSION
     Dosage: 10 MG, DAILY
     Dates: start: 2003
  3. FAMOTIDINE [Suspect]
     Indication: DYSPEPSIA
     Dosage: 40 MG, AS NEEDED
     Dates: start: 2011
  4. TAMOXIFEN CITRATE [Suspect]
     Indication: BREAST CANCER FEMALE
     Dosage: 20 MG, DAILY
     Dates: start: 2008
  5. METOPROLOL [Suspect]
     Indication: HYPERTENSION
     Dosage: UNK
  6. TOPROL XL [Suspect]
     Indication: HYPERTENSION
     Dosage: 100 MG,  DAILY
     Dates: start: 2012
  7. CYMBALTA [Suspect]
     Indication: DEPRESSION
     Dosage: 60 MG, DAILY
     Dates: start: 2003
  8. LOVASTATIN [Suspect]
     Indication: BLOOD CHOLESTEROL INCREASED
     Dosage: 20 MG, DAILY
     Dates: start: 2007
  9. SOLGAR FORMULA VM-75 [Suspect]
     Indication: COELIAC DISEASE
     Dosage: UNK, DAILY
     Dates: start: 2010
  10. SOLGAR B-COMPLEX [Suspect]
     Indication: COELIAC DISEASE
     Dosage: DAILY
     Dates: start: 2010

REACTIONS (5)
  - Lethargy [Unknown]
  - Feeling abnormal [Unknown]
  - Rash [Unknown]
  - Hypersensitivity [Unknown]
  - Protein total increased [Unknown]
